FAERS Safety Report 7941012-0 (Version None)
Quarter: 2011Q4

REPORT INFORMATION
  Report Type: 
  Country: None (occurrence: None)
  Receive Date: 20111128
  Receipt Date: 20111117
  Transmission Date: 20120403
  Serious: Yes (Other)
  Sender: FDA-Public Use
  Company Number: IT-JNJFOC-20111107289

PATIENT
  Sex: Male

DRUGS (2)
  1. LEVOFLOXACIN [Suspect]
     Indication: BACTERIAL INFECTION
     Route: 048
     Dates: start: 20111012
  2. KETOPROFEN [Suspect]
     Indication: BACTERIAL INFECTION
     Route: 048
     Dates: start: 20111011, end: 20111012

REACTIONS (4)
  - APHONIA [None]
  - CYANOSIS [None]
  - CONVULSION [None]
  - APNOEA [None]
